FAERS Safety Report 20233873 (Version 2)
Quarter: 2021Q4

REPORT INFORMATION
  Report Type: Spontaneous
  Country: JP (occurrence: JP)
  Receive Date: 20211227
  Receipt Date: 20211230
  Transmission Date: 20220303
  Serious: Yes (Death, Other)
  Sender: FDA-Public Use
  Company Number: JP-BRISTOL-MYERS SQUIBB COMPANY-BMS-2021-140253

PATIENT
  Age: 59 Year
  Sex: Male
  Weight: 53 kg

DRUGS (2)
  1. YERVOY [Suspect]
     Active Substance: IPILIMUMAB
     Indication: Non-small cell lung cancer
     Dosage: 50 MILLIGRAM, ONE TIME DOSE
     Route: 042
     Dates: start: 20211102, end: 20211102
  2. OPDIVO [Suspect]
     Active Substance: NIVOLUMAB
     Indication: Non-small cell lung cancer
     Dosage: 360 MILLIGRAM, ONE TIME DOSE
     Route: 042
     Dates: start: 20211102, end: 20211102

REACTIONS (2)
  - Toxic epidermal necrolysis [Fatal]
  - Malignant neoplasm progression [Fatal]

NARRATIVE: CASE EVENT DATE: 20211116
